FAERS Safety Report 10947046 (Version 1)
Quarter: 2015Q1

REPORT INFORMATION
  Report Type: Spontaneous
  Country: US (occurrence: None)
  Receive Date: 20150212
  Receipt Date: 20150212
  Transmission Date: 20150721
  Serious: No
  Sender: FDA-Public Use
  Company Number: TPA2011A06774

PATIENT
  Age: 6 Decade
  Sex: Male

DRUGS (4)
  1. PROTONIX (PANTOPRAZOLE) [Concomitant]
  2. ULORIC [Suspect]
     Active Substance: FEBUXOSTAT
     Indication: GOUT
     Route: 048
  3. CRESTOR [Concomitant]
     Active Substance: ROSUVASTATIN CALCIUM
  4. TRIBENZOR (HYDROHCLOROTHIAZIDE, AMLODIPINE) [Concomitant]

REACTIONS (1)
  - Abdominal pain upper [None]
